FAERS Safety Report 9602083 (Version 1)
Quarter: 2013Q4

REPORT INFORMATION
  Report Type: Spontaneous
  Country: US (occurrence: US)
  Receive Date: 20131007
  Receipt Date: 20131007
  Transmission Date: 20140711
  Serious: Yes (Death, Other)
  Sender: FDA-Public Use
  Company Number: US-BRISTOL-MYERS SQUIBB COMPANY-18766410

PATIENT
  Age: 66 Year
  Sex: Male

DRUGS (3)
  1. BELATACEPT [Suspect]
     Indication: RENAL TRANSPLANT
     Dosage: 250MG VIAL
     Route: 042
     Dates: start: 20130121
  2. CELLCEPT [Concomitant]
  3. PREDNISONE [Concomitant]

REACTIONS (5)
  - Sepsis [Fatal]
  - Respiratory failure [Fatal]
  - Enterococcal bacteraemia [Recovered/Resolved]
  - Pneumonia bacterial [Recovered/Resolved]
  - Acute myocardial infarction [Recovered/Resolved]
